FAERS Safety Report 9773400 (Version 2)
Quarter: 2014Q1

REPORT INFORMATION
  Report Type: Spontaneous
  Country: IT (occurrence: IT)
  Receive Date: 20131219
  Receipt Date: 20140204
  Transmission Date: 20141002
  Serious: Yes (Hospitalization)
  Sender: FDA-Public Use
  Company Number: PHHY2013IT147573

PATIENT
  Age: 43 Year
  Sex: Female

DRUGS (6)
  1. GILENYA [Suspect]
     Indication: MULTIPLE SCLEROSIS
     Dosage: 0.5 MG, QD
     Route: 048
     Dates: start: 20131122, end: 20131128
  2. DELTACORTENE [Concomitant]
     Dosage: 25 MG, UNK
     Route: 048
  3. CACIT                                   /NET/ [Concomitant]
     Dosage: 20 MG, UNK
     Route: 048
  4. MODURETIC [Concomitant]
     Dosage: 5 MG, UNK
     Route: 048
  5. MODURETIC [Concomitant]
     Dosage: 50 MG, UNK
     Route: 048
  6. ESOPRAL [Concomitant]
     Dosage: 40 MG, UNK
     Route: 048

REACTIONS (3)
  - Conversion disorder [Recovered/Resolved]
  - Paraesthesia [Recovered/Resolved]
  - Hypertransaminasaemia [Recovered/Resolved]
